FAERS Safety Report 25840465 (Version 1)
Quarter: 2025Q3

REPORT INFORMATION
  Report Type: Spontaneous
  Country: US (occurrence: US)
  Receive Date: 20250924
  Receipt Date: 20250924
  Transmission Date: 20251020
  Serious: Yes (Life-Threatening, Hospitalization)
  Sender: MYLAN
  Company Number: US-MYLANLABS-2025M1080650

PATIENT
  Age: 61 Year
  Sex: Female

DRUGS (4)
  1. NALOXONE [Suspect]
     Active Substance: NALOXONE
     Indication: Overdose
  2. NALOXONE [Suspect]
     Active Substance: NALOXONE
     Route: 065
  3. NALOXONE [Suspect]
     Active Substance: NALOXONE
     Route: 065
  4. NALOXONE [Suspect]
     Active Substance: NALOXONE

REACTIONS (1)
  - Therapy non-responder [Unknown]
